FAERS Safety Report 6920010-X (Version None)
Quarter: 2010Q3

REPORT INFORMATION
  Report Type: 
  Country: None (occurrence: None)
  Receive Date: 20100811
  Receipt Date: 20100730
  Transmission Date: 20110219
  Serious: Yes (Hospitalization)
  Sender: FDA-Public Use
  Company Number: JP-PFIZER INC-2010081899

PATIENT
  Age: 9 Year
  Sex: Male

DRUGS (2)
  1. GENOTROPIN [Suspect]
     Indication: DWARFISM
     Dosage: 0.5MG X 4 DAYS, 0.6 MG X 2 DAYS
     Route: 058
     Dates: start: 20090514, end: 20091018
  2. PREDNISOLONE [Concomitant]
     Indication: HYPER IGE SYNDROME
     Dosage: 2 MG/KG, UNK
     Route: 048

REACTIONS (2)
  - DISEASE RECURRENCE [None]
  - NEPHROTIC SYNDROME [None]
